FAERS Safety Report 4791788-9 (Version None)
Quarter: 2005Q4

REPORT INFORMATION
  Report Type: 
  Country: None (occurrence: None)
  Receive Date: 20051007
  Receipt Date: 20050927
  Transmission Date: 20060501
  Serious: Yes (Death, Life-Threatening, Other)
  Sender: FDA-Public Use
  Company Number: FR-BRISTOL-MYERS SQUIBB COMPANY-13126230

PATIENT
  Age: 44 Year
  Sex: Male

DRUGS (5)
  1. VIDEX [Suspect]
     Indication: HIV INFECTION
     Route: 048
     Dates: start: 20040816, end: 20050901
  2. EPIVIR [Suspect]
     Dates: start: 20040816
  3. VIREAD [Suspect]
     Dates: start: 20040816
  4. PEGASYS [Suspect]
     Dates: start: 20050627
  5. COPEGUS [Suspect]
     Dosage: DOSE REDUCED TO 800 MG ON 23-AUG-2005.
     Dates: start: 20050627

REACTIONS (6)
  - HEPATIC CIRRHOSIS [None]
  - HEPATIC ENCEPHALOPATHY [None]
  - LACTIC ACIDOSIS [None]
  - MENINGITIS [None]
  - OEDEMA PERIPHERAL [None]
  - RENAL FAILURE [None]
